FAERS Safety Report 6311740-1 (Version None)
Quarter: 2009Q3

REPORT INFORMATION
  Report Type: 
  Country: None (occurrence: None)
  Receive Date: 20090817
  Receipt Date: 20090807
  Transmission Date: 20100115
  Serious: Yes (Hospitalization, Other)
  Sender: FDA-Public Use
  Company Number: BR-ASTRAZENECA-2009SE07669

PATIENT
  Age: 44 Year
  Sex: Male

DRUGS (2)
  1. OMEPRAZOLE [Suspect]
     Route: 048
     Dates: end: 20090701
  2. OMEPRAZOLE [Suspect]
     Route: 048
     Dates: start: 20090701

REACTIONS (7)
  - BACK PAIN [None]
  - GASTRIC CANCER [None]
  - GASTROOESOPHAGEAL REFLUX DISEASE [None]
  - LUNG NEOPLASM [None]
  - METASTASIS [None]
  - OESOPHAGEAL STENOSIS [None]
  - POST GASTRIC SURGERY SYNDROME [None]
